FAERS Safety Report 11857612 (Version 1)
Quarter: 2015Q4

REPORT INFORMATION
  Report Type: Spontaneous
  Country: US (occurrence: None)
  Receive Date: 20151221
  Receipt Date: 20151221
  Transmission Date: 20160305
  Serious: Yes (Hospitalization)
  Sender: FDA-Public Use
  Company Number: None

PATIENT
  Age: 86 Year
  Sex: Male
  Weight: 87.3 kg

DRUGS (1)
  1. CLOPIDOGREL [Suspect]
     Active Substance: CLOPIDOGREL BISULFATE
     Indication: TRANSIENT ISCHAEMIC ATTACK
     Route: 048
     Dates: start: 20150630, end: 20151207

REACTIONS (5)
  - Myocardial infarction [None]
  - Diverticulitis [None]
  - Rectal haemorrhage [None]
  - Upper gastrointestinal haemorrhage [None]
  - Gastritis [None]

NARRATIVE: CASE EVENT DATE: 20151207
